FAERS Safety Report 16591324 (Version 1)
Quarter: 2019Q3

REPORT INFORMATION
  Report Type: Spontaneous
  Country: DE (occurrence: DE)
  Receive Date: 20190718
  Receipt Date: 20190718
  Transmission Date: 20191004
  Serious: Yes (Hospitalization, Other)
  Sender: FDA-Public Use
  Company Number: DE-PFIZER INC-2019302431

PATIENT
  Age: 64 Year
  Sex: Male
  Weight: 79.5 kg

DRUGS (14)
  1. CYCLOPHOSPHAMID [Suspect]
     Active Substance: CYCLOPHOSPHAMIDE
     Dosage: 750 MG/M2, UNK
     Route: 042
     Dates: end: 20180205
  2. VINCRISTIN [Suspect]
     Active Substance: VINCRISTINE
     Dosage: 2 MG, SINGLE
     Route: 042
     Dates: start: 20171201, end: 20171201
  3. BENZYDAMINE [Concomitant]
     Active Substance: BENZYDAMINE
     Dosage: 1.5 MG/ML, 1-1-1-1, FLUID
     Route: 048
  4. RITUXIMAB. [Suspect]
     Active Substance: RITUXIMAB
     Dosage: 375 MG/M2, UNK
     Route: 042
     Dates: end: 20180205
  5. FUROSEMID [Concomitant]
     Active Substance: FUROSEMIDE
     Dosage: 40 MG, 1X/DAY 1-0-0
     Route: 048
  6. SPIRONOLACTON [Concomitant]
     Active Substance: SPIRONOLACTONE
     Dosage: 50 MG, 1X/DAY 1-0-0
     Route: 048
  7. TADALAFIL. [Concomitant]
     Active Substance: TADALAFIL
     Dosage: 20 MG, 2X/DAY 0-0-2
     Route: 048
  8. DOXORUBICIN [Suspect]
     Active Substance: DOXORUBICIN
     Dosage: 50 MG/M2, UNK
     Route: 042
     Dates: end: 20180205
  9. ACICLOVIR [Concomitant]
     Active Substance: ACYCLOVIR
     Dosage: 400 MG, 2X/DAY 1-0-1
     Route: 048
  10. FILGRASTIM [Suspect]
     Active Substance: FILGRASTIM
     Dosage: UNK
     Route: 058
  11. PARACETAMOL [Concomitant]
     Active Substance: ACETAMINOPHEN
     Dosage: 2 G, UNK
     Route: 048
     Dates: start: 20180211
  12. PANTOPRAZOLE [Concomitant]
     Active Substance: PANTOPRAZOLE
     Dosage: 40 MG, 1X/DAY 1-0-0
     Route: 048
  13. ALPHA LIPOGAMMA [THIOCTIC ACID] [Concomitant]
     Dosage: 600 MG, 1X/DAY 0-1-0
     Route: 048
  14. COTRIM FORTE [Concomitant]
     Active Substance: SULFAMETHOXAZOLE\TRIMETHOPRIM
     Dosage: 800|160 MG, 1-0-0; 3 X WEEKLY, TABLETS
     Route: 048

REACTIONS (6)
  - Diarrhoea [Unknown]
  - Dry mouth [Unknown]
  - Pyrexia [Unknown]
  - Abdominal distension [Unknown]
  - Erysipelas [Unknown]
  - Paraesthesia [Unknown]
